FAERS Safety Report 11792134 (Version 1)
Quarter: 2015Q4

REPORT INFORMATION
  Report Type: Spontaneous
  Country: FR (occurrence: FR)
  Receive Date: 20151201
  Receipt Date: 20151201
  Transmission Date: 20160305
  Serious: Yes (Death, Life-Threatening, Other)
  Sender: FDA-Public Use
  Company Number: FR-ELI_LILLY_AND_COMPANY-FR201511008422

PATIENT
  Age: 73 Year
  Sex: Female

DRUGS (2)
  1. ALIMTA [Suspect]
     Active Substance: PEMETREXED DISODIUM
     Indication: LUNG ADENOCARCINOMA METASTATIC
     Dosage: 625 MG, CYCLICAL
     Route: 042
     Dates: start: 20131024, end: 20131115
  2. CARBOPLATIN. [Suspect]
     Active Substance: CARBOPLATIN
     Indication: LUNG ADENOCARCINOMA METASTATIC
     Dosage: 430 MG, CYCLICAL
     Route: 042
     Dates: start: 20131024, end: 20131115

REACTIONS (10)
  - Multi-organ failure [Fatal]
  - Hypotension [Unknown]
  - Decreased appetite [Unknown]
  - Renal failure [Unknown]
  - Escherichia test positive [Unknown]
  - Acute respiratory failure [Unknown]
  - Off label use [Unknown]
  - Febrile bone marrow aplasia [Fatal]
  - Streptococcus test positive [Unknown]
  - Diarrhoea [Unknown]

NARRATIVE: CASE EVENT DATE: 20131122
